FAERS Safety Report 5088060-9 (Version None)
Quarter: 2006Q3

REPORT INFORMATION
  Report Type: 
  Country: None (occurrence: None)
  Receive Date: 20060727
  Receipt Date: 20060412
  Transmission Date: 20061208
  Serious: Yes (Other)
  Sender: FDA-Public Use
  Company Number: 2006037265

PATIENT
  Age: 80 Year
  Sex: Female
  Weight: 62.5964 kg

DRUGS (6)
  1. LYRICA [Suspect]
     Indication: LUMBAR RADICULOPATHY
     Dosage: 100 MG (50 MG, 2 IN 1 D), ORAL
     Route: 048
     Dates: start: 20060303, end: 20060303
  2. LYRICA [Suspect]
     Indication: LUMBAR SPINAL STENOSIS
     Dosage: 100 MG (50 MG, 2 IN 1 D), ORAL
     Route: 048
     Dates: start: 20060303, end: 20060303
  3. HYZAAR [Concomitant]
  4. LASIX [Concomitant]
  5. METOPROLOL (METOPROLOL) [Concomitant]
  6. FOSAMAX [Concomitant]

REACTIONS (4)
  - DIZZINESS [None]
  - DYSSTASIA [None]
  - MALAISE [None]
  - NAUSEA [None]
